FAERS Safety Report 7743107-3 (Version None)
Quarter: 2011Q3

REPORT INFORMATION
  Report Type: 
  Country: None (occurrence: None)
  Receive Date: 20110912
  Receipt Date: 20110829
  Transmission Date: 20111222
  Serious: Yes (Other)
  Sender: FDA-Public Use
  Company Number: US-ROCHE-799304

PATIENT

DRUGS (3)
  1. SUTENT [Suspect]
     Indication: BREAST CANCER
     Route: 065
  2. PACLITAXEL [Suspect]
     Indication: BREAST CANCER
     Route: 065
  3. BEVACIZUMAB [Suspect]
     Indication: BREAST CANCER
     Route: 065

REACTIONS (25)
  - FATIGUE [None]
  - ALOPECIA [None]
  - NEUROPATHY PERIPHERAL [None]
  - RASH [None]
  - HYPERTENSION [None]
  - DYSPEPSIA [None]
  - MYALGIA [None]
  - DIARRHOEA [None]
  - DYSGEUSIA [None]
  - MUCOSAL INFLAMMATION [None]
  - PALMAR-PLANTAR ERYTHRODYSAESTHESIA SYNDROME [None]
  - THROMBOCYTOPENIA [None]
  - ASTHENIA [None]
  - PERIPHERAL SENSORY NEUROPATHY [None]
  - HEADACHE [None]
  - ANAEMIA [None]
  - DECREASED APPETITE [None]
  - DYSPNOEA [None]
  - LEUKOPENIA [None]
  - NAUSEA [None]
  - STOMATITIS [None]
  - NAIL DISORDER [None]
  - VOMITING [None]
  - LYMPHOPENIA [None]
  - NEUTROPENIA [None]
